FAERS Safety Report 6401076-2 (Version None)
Quarter: 2009Q4

REPORT INFORMATION
  Report Type: 
  Country: None (occurrence: None)
  Receive Date: 20091009
  Receipt Date: 20091009
  Transmission Date: 20100525
  Serious: Yes (Disabling)
  Sender: FDA-Public Use
  Company Number: None

PATIENT
  Sex: Male
  Weight: 102.0593 kg

DRUGS (2)
  1. CIPRO [Suspect]
     Indication: URINARY TRACT INFECTION
     Dosage: ONCE IV DRIP  ONE DOSE IV ER
     Route: 042
     Dates: start: 20090428, end: 20090429
  2. CIPROFLOXACIN [Suspect]
     Indication: URINARY TRACT INFECTION
     Dosage: 500 MG TWICE DAILY PO
     Route: 048
     Dates: start: 20090429, end: 20090506

REACTIONS (3)
  - ARTHROPATHY [None]
  - SENSORY DISTURBANCE [None]
  - TENDON PAIN [None]
